FAERS Safety Report 6467002-5 (Version None)
Quarter: 2009Q4

REPORT INFORMATION
  Report Type: 
  Country: None (occurrence: None)
  Receive Date: 20091202
  Receipt Date: 20091123
  Transmission Date: 20100525
  Serious: Yes (Hospitalization)
  Sender: FDA-Public Use
  Company Number: FR-GENENTECH-292146

PATIENT
  Sex: Male
  Weight: 75 kg

DRUGS (9)
  1. RITUXIMAB [Suspect]
     Indication: B-CELL LYMPHOMA
     Dosage: 700 MG, UNK
     Route: 042
     Dates: start: 20070615, end: 20090506
  2. ENDOXAN [Concomitant]
     Indication: LYMPHOMA
     Dosage: 1500 MG, UNK
     Dates: start: 20070615, end: 20071107
  3. ENDOXAN [Concomitant]
     Dosage: UNK
     Dates: end: 20060901
  4. DOXORUBICIN [Concomitant]
     Indication: LYMPHOMA
     Dosage: UNK
     Dates: end: 20060901
  5. VINCRISTINE [Concomitant]
     Indication: LYMPHOMA
     Dosage: UNK
     Dates: end: 20060901
  6. PREDNISONE [Concomitant]
     Indication: LYMPHOMA
     Dosage: UNK
     Dates: end: 20060901
  7. FLUDARABINE [Concomitant]
     Indication: LYMPHOMA
     Dosage: 240 MG, UNK
     Dates: start: 20070615, end: 20071107
  8. WELLVONE [Concomitant]
     Indication: INFECTION PROPHYLAXIS
  9. ZELITREX [Concomitant]
     Indication: INFECTION PROPHYLAXIS

REACTIONS (1)
  - RENAL COLIC [None]
